FAERS Safety Report 8391344-X (Version None)
Quarter: 2012Q2

REPORT INFORMATION
  Report Type: 
  Country: None (occurrence: None)
  Receive Date: 20120521
  Receipt Date: 20120511
  Transmission Date: 20120825
  Serious: Yes (Other)
  Sender: FDA-Public Use
  Company Number: DSA_57066_2012

PATIENT
  Age: 68 Year

DRUGS (1)
  1. DILTIAZEM HYDROCHLORIDE [Suspect]
     Indication: EMPHYSEMA
     Dosage: (90 MG QD ORAL)
     Route: 048
     Dates: start: 20091201, end: 20091203

REACTIONS (1)
  - PNEUMOTHORAX [None]
